FAERS Safety Report 5940327-5 (Version None)
Quarter: 2008Q4

REPORT INFORMATION
  Report Type: 
  Country: None (occurrence: None)
  Receive Date: 20081104
  Receipt Date: 20081030
  Transmission Date: 20090506
  Serious: Yes (Life-Threatening, Hospitalization)
  Sender: FDA-Public Use
  Company Number: B0544235A

PATIENT
  Age: 40 Year
  Sex: Male

DRUGS (4)
  1. TRACRIUM [Suspect]
     Indication: DRUG USE FOR UNKNOWN INDICATION
     Route: 065
     Dates: start: 20081004
  2. DIPRIVAN [Suspect]
     Dosage: 150MG PER DAY
     Route: 065
     Dates: start: 20081004
  3. SUFENTA PRESERVATIVE FREE [Suspect]
     Dosage: 10MCG PER DAY
     Route: 065
     Dates: start: 20081004
  4. CEFACIDAL [Suspect]
     Dosage: 2G PER DAY
     Route: 065
     Dates: start: 20081004

REACTIONS (4)
  - ANAPHYLACTIC SHOCK [None]
  - CARDIAC ARREST [None]
  - ERYTHEMA [None]
  - TACHYCARDIA [None]
